FAERS Safety Report 7171456-9 (Version None)
Quarter: 2010Q4

REPORT INFORMATION
  Report Type: 
  Country: None (occurrence: None)
  Receive Date: 20101123
  Receipt Date: 20100901
  Transmission Date: 20110411
  Serious: No
  Sender: FDA-Public Use
  Company Number: 016833

PATIENT
  Sex: Female
  Weight: 56.7 kg

DRUGS (6)
  1. CIMZIA [Suspect]
     Indication: CROHN'S DISEASE
     Dosage: (400 MG 1X/MONTH SUBCUTANEOUS) ; (400 MG 1X/MONTH SUBCUTANEOUS) ; (400 MG 1X/MONTH SUBCUTANEOUS)
     Route: 058
     Dates: start: 20100518, end: 20100101
  2. CIMZIA [Suspect]
     Indication: CROHN'S DISEASE
     Dosage: (400 MG 1X/MONTH SUBCUTANEOUS) ; (400 MG 1X/MONTH SUBCUTANEOUS) ; (400 MG 1X/MONTH SUBCUTANEOUS)
     Route: 058
     Dates: start: 20100809, end: 20100809
  3. CIMZIA [Suspect]
     Indication: CROHN'S DISEASE
     Dosage: (400 MG 1X/MONTH SUBCUTANEOUS) ; (400 MG 1X/MONTH SUBCUTANEOUS) ; (400 MG 1X/MONTH SUBCUTANEOUS)
     Route: 058
     Dates: start: 20100708
  4. PREDNISONE [Concomitant]
  5. PENTASA [Concomitant]
  6. FOLIC ACID [Concomitant]

REACTIONS (7)
  - ABDOMINAL PAIN [None]
  - ASTHENIA [None]
  - FREQUENT BOWEL MOVEMENTS [None]
  - INJECTION SITE DISCOLOURATION [None]
  - INJECTION SITE HAEMORRHAGE [None]
  - LIMB INJURY [None]
  - NERVOUS SYSTEM DISORDER [None]
